FAERS Safety Report 6525995-1 (Version None)
Quarter: 2010Q1

REPORT INFORMATION
  Report Type: 
  Country: None (occurrence: None)
  Receive Date: 20100104
  Receipt Date: 20091223
  Transmission Date: 20100710
  Serious: Yes (Disabling, Other)
  Sender: FDA-Public Use
  Company Number: CH-GILEAD-2009-0021171

PATIENT
  Sex: Male
  Weight: 54 kg

DRUGS (11)
  1. VIREAD [Suspect]
     Indication: HIV INFECTION
     Route: 048
     Dates: start: 20070723
  2. KALETRA [Suspect]
     Route: 048
     Dates: start: 20070723
  3. KIVEXA [Suspect]
     Route: 048
     Dates: start: 20070723
  4. TORASEMIDE [Concomitant]
     Indication: HEPATIC CIRRHOSIS
     Route: 048
     Dates: start: 20070501
  5. XENALON [Concomitant]
     Indication: HEPATIC CIRRHOSIS
     Route: 048
     Dates: start: 20070501
  6. SERESTA [Concomitant]
     Indication: PERSONALITY DISORDER
     Route: 048
     Dates: start: 20040101
  7. HERION [Concomitant]
     Dates: start: 20000101
  8. METHADONE [Concomitant]
  9. CO-TRIMOXAZOLE [Concomitant]
  10. MAGNESIOCARD [Concomitant]
  11. CALCIMAGON D3 [Concomitant]
     Dates: start: 20070401

REACTIONS (6)
  - FEMORAL NECK FRACTURE [None]
  - OSTEONECROSIS [None]
  - OSTEOPOROSIS [None]
  - RADIUS FRACTURE [None]
  - RIB FRACTURE [None]
  - SPINAL FRACTURE [None]
